FAERS Safety Report 7884495-7 (Version None)
Quarter: 2011Q4

REPORT INFORMATION
  Report Type: 
  Country: None (occurrence: None)
  Receive Date: 20111102
  Receipt Date: 20111019
  Transmission Date: 20120403
  Serious: Yes (Hospitalization)
  Sender: FDA-Public Use
  Company Number: US-BAUSCH-2011BL007163

PATIENT
  Age: 52 Year
  Sex: Female

DRUGS (14)
  1. ZOLOFT [Concomitant]
     Indication: ANXIETY
     Route: 048
     Dates: start: 20100901
  2. MULTI-VITAMINS [Concomitant]
  3. SINGULAIR [Concomitant]
     Indication: URTICARIA
     Route: 048
     Dates: start: 20090101
  4. FLUTICASONE PROPIONATE [Concomitant]
     Indication: PERENNIAL ALLERGY
     Route: 045
     Dates: start: 20090101
  5. CALCIUM [Concomitant]
  6. ALAWAY [Suspect]
     Indication: EYE PRURITUS
     Route: 047
     Dates: start: 20111017, end: 20111017
  7. ASCORBIC ACID [Concomitant]
  8. VITAMIN B COMPLEX CAP [Concomitant]
  9. DIPHENHYDRAMINE HCL [Concomitant]
     Indication: URTICARIA
     Route: 048
     Dates: start: 20110401
  10. LOVAZA [Concomitant]
  11. ALAWAY [Suspect]
     Route: 047
     Dates: end: 20111001
  12. LORATADINE [Concomitant]
     Indication: URTICARIA
     Route: 048
     Dates: start: 20090101
  13. VITAMIN D [Concomitant]
  14. COENZYME Q10 [Concomitant]

REACTIONS (1)
  - MYDRIASIS [None]
